FAERS Safety Report 18092822 (Version 1)
Quarter: 2020Q3

REPORT INFORMATION
  Report Type: Spontaneous
  Country: US (occurrence: US)
  Receive Date: 20200730
  Receipt Date: 20200730
  Transmission Date: 20201103
  Serious: Yes (Life-Threatening, Hospitalization)
  Sender: FDA-Public Use
  Company Number: None

PATIENT
  Age: 71 Year
  Sex: Male

DRUGS (1)
  1. AMIODARONE [Suspect]
     Active Substance: AMIODARONE
     Indication: ATRIAL FIBRILLATION
     Route: 048
     Dates: start: 20200129, end: 20200224

REACTIONS (5)
  - Thrombocytopenia [None]
  - Arteriovenous graft site infection [None]
  - Enterobacter bacteraemia [None]
  - Ventricular tachycardia [None]
  - Cardiac arrest [None]

NARRATIVE: CASE EVENT DATE: 20200206
